FAERS Safety Report 5657598-5 (Version None)
Quarter: 2008Q1

REPORT INFORMATION
  Report Type: 
  Country: None (occurrence: None)
  Receive Date: 20080310
  Receipt Date: 20080227
  Transmission Date: 20080703
  Serious: Yes (Other)
  Sender: FDA-Public Use
  Company Number: US-PFIZER INC-2008019649

PATIENT
  Sex: Male

DRUGS (2)
  1. DEPO-MEDROL [Suspect]
     Indication: INTERVERTEBRAL DISC PROTRUSION
     Route: 008
  2. NEXIUM [Concomitant]

REACTIONS (6)
  - ABDOMINAL DISTENSION [None]
  - ARTHRALGIA [None]
  - FATIGUE [None]
  - TUNNEL VISION [None]
  - VISION BLURRED [None]
  - WEIGHT INCREASED [None]
